FAERS Safety Report 10014435 (Version 2)
Quarter: 2014Q1

REPORT INFORMATION
  Report Type: Spontaneous
  Country: US (occurrence: US)
  Receive Date: 20140317
  Receipt Date: 20140317
  Transmission Date: 20141002
  Serious: Yes (Other)
  Sender: FDA-Public Use
  Company Number: US-JNJFOC-20131111070

PATIENT
  Age: 81 Year
  Sex: Male
  Weight: 79.83 kg

DRUGS (5)
  1. XARELTO [Suspect]
     Indication: CEREBROVASCULAR ACCIDENT PROPHYLAXIS
     Dosage: STRENGTH: 20 MG
     Route: 048
     Dates: start: 20131003, end: 20131026
  2. XARELTO [Suspect]
     Indication: ATRIAL FIBRILLATION
     Dosage: STRENGTH: 20 MG
     Route: 048
     Dates: start: 20131003, end: 20131026
  3. AMLODIPINE [Concomitant]
     Dosage: INITIATED YEARS AGO
     Route: 065
  4. DIOVAN HCT [Concomitant]
     Dosage: INITIATED YEARS AGO??350/75
     Route: 065
  5. KEFLEX [Concomitant]
     Dosage: INITIATED 6 MONTHS AGO
     Route: 065

REACTIONS (5)
  - Hepatitis acute [Recovered/Resolved]
  - Coagulopathy [Recovered/Resolved]
  - Activated partial thromboplastin time [Unknown]
  - International normalised ratio increased [Recovered/Resolved]
  - Epistaxis [Recovered/Resolved]
